FAERS Safety Report 25407687 (Version 1)
Quarter: 2025Q2

REPORT INFORMATION
  Report Type: Spontaneous
  Country: US (occurrence: US)
  Receive Date: 20250606
  Receipt Date: 20250606
  Transmission Date: 20250717
  Serious: Yes (Hospitalization)
  Sender: PFIZER
  Company Number: US-PFIZER INC-202500115805

PATIENT
  Age: 65 Year
  Sex: Male

DRUGS (2)
  1. BRAFTOVI [Suspect]
     Active Substance: ENCORAFENIB
  2. MEKTOVI [Suspect]
     Active Substance: BINIMETINIB

REACTIONS (1)
  - Chronic obstructive pulmonary disease [Unknown]
